FAERS Safety Report 7563175-1 (Version None)
Quarter: 2011Q2

REPORT INFORMATION
  Report Type: 
  Country: None (occurrence: None)
  Receive Date: 20110621
  Receipt Date: 20110621
  Transmission Date: 20111010
  Serious: Yes (Other)
  Sender: FDA-Public Use
  Company Number: None

PATIENT
  Age: 27 Year
  Sex: Female
  Weight: 72.5755 kg

DRUGS (2)
  1. VENLAFAXINE [Suspect]
     Indication: BIPOLAR DISORDER
     Dosage: 75 MG QD AM PO
     Route: 048
     Dates: start: 20100201, end: 20100401
  2. VENLAFAXINE [Suspect]
     Indication: DEPRESSION
     Dosage: 75 MG QD AM PO
     Route: 048
     Dates: start: 20100201, end: 20100401

REACTIONS (5)
  - PARANOIA [None]
  - FEAR [None]
  - DELUSION [None]
  - PRODUCT SUBSTITUTION ISSUE [None]
  - DEPRESSION [None]
